FAERS Safety Report 23150850 (Version 1)
Quarter: 2023Q4

REPORT INFORMATION
  Report Type: Report from Study
  Country: US (occurrence: US)
  Receive Date: 20231106
  Receipt Date: 20231106
  Transmission Date: 20240109
  Serious: Yes (Other)
  Sender: FDA-Public Use
  Company Number: US-OTSUKA-2023_027621

PATIENT
  Sex: Male

DRUGS (2)
  1. REXULTI [Suspect]
     Active Substance: BREXPIPRAZOLE
     Indication: Product used for unknown indication
     Dosage: UNK
     Route: 065
  2. UNSPECIFIED INGREDIENT [Suspect]
     Active Substance: UNSPECIFIED INGREDIENT
     Indication: Product used for unknown indication
     Dosage: UNK
     Route: 065

REACTIONS (16)
  - Mental impairment [Unknown]
  - Tardive dyskinesia [Unknown]
  - Suicidal ideation [Unknown]
  - Seizure [Unknown]
  - Appetite disorder [Unknown]
  - Disturbance in attention [Unknown]
  - Vomiting [Unknown]
  - Headache [Unknown]
  - Constipation [Unknown]
  - Fatigue [Unknown]
  - Nausea [Unknown]
  - Compulsions [Unknown]
  - Dizziness [Unknown]
  - Akathisia [Unknown]
  - Somnolence [Unknown]
  - Weight increased [Unknown]
